FAERS Safety Report 15417736 (Version 3)
Quarter: 2018Q4

REPORT INFORMATION
  Report Type: Spontaneous
  Country: US (occurrence: US)
  Receive Date: 20180924
  Receipt Date: 20181130
  Transmission Date: 20190204
  Serious: Yes (Hospitalization, Other)
  Sender: FDA-Public Use
  Company Number: US-BRISTOL-MYERS SQUIBB COMPANY-BMS-2018-084638

PATIENT
  Age: 74 Year
  Sex: Female
  Weight: 61.23 kg

DRUGS (2)
  1. ORENCIA [Suspect]
     Active Substance: ABATACEPT
     Indication: RHEUMATOID ARTHRITIS
     Dosage: 125 MG, QWK
     Route: 058
     Dates: start: 2006, end: 20180808
  2. ORENCIA [Suspect]
     Active Substance: ABATACEPT
     Indication: RHEUMATOID ARTHRITIS
     Dosage: UNK
     Route: 042

REACTIONS (8)
  - Myocardial infarction [Unknown]
  - Cerebrovascular accident [Unknown]
  - Pain in extremity [Unknown]
  - Arthralgia [Unknown]
  - Back disorder [Unknown]
  - Hypertension [Unknown]
  - Clostridium difficile infection [Unknown]
  - Vein disorder [Unknown]

NARRATIVE: CASE EVENT DATE: 20170605
